FAERS Safety Report 6368737-5 (Version None)
Quarter: 2009Q3

REPORT INFORMATION
  Report Type: 
  Country: None (occurrence: None)
  Receive Date: 20090917
  Receipt Date: 20090917
  Transmission Date: 20100115
  Serious: No
  Sender: FDA-Public Use
  Company Number: None

PATIENT
  Sex: Female
  Weight: 60.782 kg

DRUGS (1)
  1. AVELOX [Suspect]
     Indication: PLEURAL EFFUSION
     Dosage: 400 MG ONCE DAILY PO
     Route: 048
     Dates: start: 20090126, end: 20090201

REACTIONS (6)
  - ARTHRALGIA [None]
  - DIARRHOEA [None]
  - JOINT SWELLING [None]
  - OEDEMA PERIPHERAL [None]
  - PAIN IN EXTREMITY [None]
  - VOMITING [None]
